FAERS Safety Report 8325029-2 (Version None)
Quarter: 2012Q2

REPORT INFORMATION
  Report Type: 
  Country: None (occurrence: None)
  Receive Date: 20120501
  Receipt Date: 20100316
  Transmission Date: 20120825
  Serious: No
  Sender: FDA-Public Use
  Company Number: US-TEVA-2010001528

PATIENT
  Sex: Female
  Weight: 74.91 kg

DRUGS (7)
  1. DARVOCET [Concomitant]
  2. NUVIGIL [Suspect]
     Indication: SOMNOLENCE
     Route: 048
     Dates: start: 20090201
  3. CYMBALTA [Concomitant]
  4. SIMVASTATIN [Concomitant]
  5. FLEXERIL [Concomitant]
  6. NEXIUM [Concomitant]
  7. ZOLOFT [Concomitant]

REACTIONS (1)
  - DRUG INEFFECTIVE FOR UNAPPROVED INDICATION [None]
